FAERS Safety Report 6748874-3 (Version None)
Quarter: 2010Q2

REPORT INFORMATION
  Report Type: 
  Country: None (occurrence: None)
  Receive Date: 20100601
  Receipt Date: 20100517
  Transmission Date: 20101027
  Serious: Yes (Other)
  Sender: FDA-Public Use
  Company Number: US-ASTRAZENECA-2009SE17552

PATIENT
  Sex: Female

DRUGS (5)
  1. SEROQUEL [Suspect]
     Route: 048
     Dates: start: 20030402
  2. AMITRIPTYLINE [Concomitant]
  3. RISPERDAL [Concomitant]
  4. ZOCOR [Concomitant]
  5. XANAX [Concomitant]

REACTIONS (3)
  - DIABETES MELLITUS [None]
  - GLUCOSE TOLERANCE IMPAIRED [None]
  - PERIPHERAL SENSORY NEUROPATHY [None]
